FAERS Safety Report 18936914 (Version 1)
Quarter: 2021Q1

REPORT INFORMATION
  Report Type: Report from Study
  Country: US (occurrence: US)
  Receive Date: 20210224
  Receipt Date: 20210224
  Transmission Date: 20210420
  Serious: Yes (Hospitalization)
  Sender: FDA-Public Use
  Company Number: US-UCBSA-2021007537

PATIENT
  Age: 18 Year
  Sex: Male

DRUGS (1)
  1. MIDAZOLAM. [Suspect]
     Active Substance: MIDAZOLAM
     Indication: SEIZURE
     Dosage: 5MG (1ML IN ONE NOSTRIL MAY REPEAT AFTER 10MINS IN OTHER NOSTRIL)
     Route: 045

REACTIONS (2)
  - Seizure [Not Recovered/Not Resolved]
  - Teething [Not Recovered/Not Resolved]

NARRATIVE: CASE EVENT DATE: 20210211
